FAERS Safety Report 16334000 (Version 2)
Quarter: 2019Q3

REPORT INFORMATION
  Report Type: Spontaneous
  Country: FR (occurrence: FR)
  Receive Date: 20190520
  Receipt Date: 20190701
  Transmission Date: 20191004
  Serious: Yes (Hospitalization, Other)
  Sender: FDA-Public Use
  Company Number: FR-009507513-1905FRA007072

PATIENT
  Age: 68 Year
  Sex: Male
  Weight: 64 kg

DRUGS (6)
  1. KARDEGIC [Concomitant]
     Active Substance: ASPIRIN DL-LYSINE
     Indication: ARTERIOSCLEROSIS
     Dosage: 75 MILLIGRAM
  2. METFORMIN [Concomitant]
     Active Substance: METFORMIN HYDROCHLORIDE
     Indication: TYPE 2 DIABETES MELLITUS
     Dosage: UNK UNK, BID
  3. SERESTA [Concomitant]
     Active Substance: OXAZEPAM
     Dosage: 10 MILLIGRAM
  4. KEYTRUDA [Suspect]
     Active Substance: PEMBROLIZUMAB
     Indication: BRONCHIAL CARCINOMA
     Dosage: 200MG EVERY 21 DAYS
     Route: 042
     Dates: start: 20190329
  5. PERINDOPRIL [Concomitant]
     Active Substance: PERINDOPRIL
     Indication: HYPERTENSION
     Dosage: 4 MILLIGRAM
  6. KEYTRUDA [Suspect]
     Active Substance: PEMBROLIZUMAB
     Dosage: 200MG EVERY 21 DAYS
     Route: 042
     Dates: start: 20190419

REACTIONS (3)
  - Pancreatic pseudocyst [Unknown]
  - Gamma-glutamyltransferase increased [Unknown]
  - Cholestasis [Recovering/Resolving]

NARRATIVE: CASE EVENT DATE: 201904
